FAERS Safety Report 9399703 (Version 1)
Quarter: 2013Q3

REPORT INFORMATION
  Report Type: Spontaneous
  Country: ES (occurrence: ES)
  Receive Date: 20130710
  Receipt Date: 20130710
  Transmission Date: 20140515
  Serious: Yes (Hospitalization)
  Sender: FDA-Public Use
  Company Number: VAL_02605_2013

PATIENT
  Age: 52 Year
  Sex: Female

DRUGS (3)
  1. CALCITRIOL [Suspect]
     Indication: HYPOPARATHYROIDISM
  2. CALCIUM CARBONATE [Suspect]
     Indication: POST PROCEDURAL HYPOTHYROIDISM
  3. LEVOTHYROXINE [Concomitant]

REACTIONS (9)
  - Abdominal distension [None]
  - Dyspepsia [None]
  - Nausea [None]
  - Vomiting [None]
  - Headache [None]
  - Abdominal pain upper [None]
  - Hypercalcaemia [None]
  - Blood creatinine increased [None]
  - Blood urea increased [None]
